FAERS Safety Report 7962625-6 (Version None)
Quarter: 2011Q4

REPORT INFORMATION
  Report Type: 
  Country: None (occurrence: None)
  Receive Date: 20111207
  Receipt Date: 20111201
  Transmission Date: 20120403
  Serious: Yes (Other)
  Sender: FDA-Public Use
  Company Number: BR-ABBOTT-11P-020-0880197-00

PATIENT
  Sex: Female
  Weight: 78 kg

DRUGS (4)
  1. HUMIRA [Suspect]
     Indication: RHEUMATOID ARTHRITIS
  2. METHOTREXATE [Concomitant]
     Indication: PRODUCT USED FOR UNKNOWN INDICATION
     Route: 048
  3. CLOROQUINE PHOSPHATE [Concomitant]
     Indication: ARTHRITIS
     Route: 048
  4. METHOTREXATE [Concomitant]
     Route: 048

REACTIONS (2)
  - INFECTION [None]
  - IMPLANT SITE EFFUSION [None]
